FAERS Safety Report 14491043 (Version 2)
Quarter: 2018Q1

REPORT INFORMATION
  Report Type: Spontaneous
  Country: ES (occurrence: ES)
  Receive Date: 20180206
  Receipt Date: 20180209
  Transmission Date: 20180509
  Serious: Yes (Other)
  Sender: FDA-Public Use
  Company Number: ES-AUROBINDO-AUR-APL-2018-004747

PATIENT
  Age: 92 Year
  Sex: Female

DRUGS (8)
  1. PARACETAMOL [Concomitant]
     Active Substance: ACETAMINOPHEN
     Indication: PRODUCT USED FOR UNKNOWN INDICATION
     Dosage: 1 GR CADA 8 HORAS ()
     Dates: start: 20170125, end: 20170218
  2. ACENOCUMAROL [Suspect]
     Active Substance: ACENOCOUMAROL
     Dosage: 0.25 MG CADA 24 HORAS CON AUMENTO POSTERIOR A 0,5 MG CADA 24 HORAS EL 26/01/2017
     Route: 048
     Dates: start: 20040917, end: 20170127
  3. AMOXICILLIN+CLAVULANIC ACID [Suspect]
     Active Substance: AMOXICILLIN\CLAVULANIC ACID
     Indication: PNEUMONIA
     Dosage: 1 GR CADA 8 HORAS CON DESCENSO POSTERIOR DE DOSIS A 875 GR CADA 8 HORAS EL 30/01/2017
     Route: 042
     Dates: start: 20170125, end: 20170208
  4. ACENOCUMAROL [Suspect]
     Active Substance: ACENOCOUMAROL
     Indication: ATRIAL FIBRILLATION
     Dosage: UNK
     Route: 048
     Dates: start: 20170125, end: 20170127
  5. AMBROXOL [Concomitant]
     Active Substance: AMBROXOL
     Indication: PRODUCT USED FOR UNKNOWN INDICATION
     Dosage: 15 MG CADA 8 HORAS ()
     Dates: start: 20170125, end: 20170217
  6. PANTOPRAZOL [Concomitant]
     Active Substance: PANTOPRAZOLE SODIUM
     Indication: PRODUCT USED FOR UNKNOWN INDICATION
     Dosage: 20 MG CADA 24 HORAS
     Dates: start: 20170126, end: 20170216
  7. LORAZEPAM. [Concomitant]
     Active Substance: LORAZEPAM
     Indication: PRODUCT USED FOR UNKNOWN INDICATION
     Dosage: 0,5 MG CADA 24 HORAS CON AUMENTO EL 26/01/2017 A 1 MG CADA 24 HORAS ()
     Dates: start: 20170126, end: 20170217
  8. DIGOXINA [Concomitant]
     Active Substance: DIGOXIN
     Indication: PRODUCT USED FOR UNKNOWN INDICATION
     Dosage: 0,125 MG CADA 24 HORAS ()
     Dates: start: 20170126, end: 20170131

REACTIONS (1)
  - Hypocoagulable state [Recovered/Resolved]

NARRATIVE: CASE EVENT DATE: 20170127
